FAERS Safety Report 7610006-7 (Version None)
Quarter: 2011Q3

REPORT INFORMATION
  Report Type: 
  Country: None (occurrence: None)
  Receive Date: 20110714
  Receipt Date: 20110706
  Transmission Date: 20111222
  Serious: Yes (Other)
  Sender: FDA-Public Use
  Company Number: CN-ASTRAZENECA-2011SE40328

PATIENT
  Age: 34 Year
  Sex: Male
  Weight: 60 kg

DRUGS (1)
  1. LIDOCAINE [Suspect]
     Indication: LOCAL ANAESTHESIA
     Route: 050

REACTIONS (6)
  - OPISTHOTONUS [None]
  - FLUSHING [None]
  - TACHYPNOEA [None]
  - ALTERED STATE OF CONSCIOUSNESS [None]
  - PROTRUSION TONGUE [None]
  - GAZE PALSY [None]
